FAERS Safety Report 9237973 (Version 1)
Quarter: 2013Q2

REPORT INFORMATION
  Report Type: Spontaneous
  Country: DE (occurrence: DE)
  Receive Date: 20130418
  Receipt Date: 20130418
  Transmission Date: 20140414
  Serious: Yes (Hospitalization)
  Sender: FDA-Public Use
  Company Number: DE-JNJFOC-20130403289

PATIENT
  Age: 74 Year
  Sex: Female
  Weight: 130 kg

DRUGS (7)
  1. XARELTO [Suspect]
     Indication: ATRIAL FIBRILLATION
     Route: 048
     Dates: start: 20120417
  2. XARELTO [Suspect]
     Indication: CEREBROVASCULAR ACCIDENT PROPHYLAXIS
     Route: 048
     Dates: start: 20120417
  3. METFORMIN [Concomitant]
     Route: 065
  4. VERAPAMIL [Concomitant]
     Route: 065
  5. SIMVABETA [Concomitant]
     Route: 065
  6. MOXONIDIN [Concomitant]
     Route: 065
  7. IBUPROFEN [Concomitant]
     Route: 065

REACTIONS (3)
  - Gastrointestinal haemorrhage [Unknown]
  - Anaemia [Recovered/Resolved]
  - Cardiac failure [Recovered/Resolved]
